FAERS Safety Report 4375516-7 (Version None)
Quarter: 2004Q2

REPORT INFORMATION
  Report Type: 
  Country: None (occurrence: None)
  Receive Date: 20040610
  Receipt Date: 20040115
  Transmission Date: 20050107
  Serious: Yes (Hospitalization)
  Sender: FDA-Public Use
  Company Number: DE-ROCHE-356200

PATIENT
  Age: 48 Year
  Sex: Male

DRUGS (44)
  1. MYCOPHENOLATE MOFETIL [Suspect]
     Route: 065
     Dates: start: 20031220, end: 20031229
  2. MYCOPHENOLATE MOFETIL [Suspect]
     Route: 065
     Dates: start: 20031230, end: 20040114
  3. MYCOPHENOLATE MOFETIL [Suspect]
     Route: 065
     Dates: start: 20040115, end: 20040130
  4. MYCOPHENOLATE MOFETIL [Suspect]
     Route: 065
     Dates: start: 20040131, end: 20040202
  5. CYCLOSPORINE [Suspect]
     Route: 065
     Dates: start: 20031220, end: 20031220
  6. CYCLOSPORINE [Suspect]
     Route: 065
     Dates: start: 20031221, end: 20031221
  7. CYCLOSPORINE [Suspect]
     Route: 065
     Dates: start: 20031222, end: 20031222
  8. CYCLOSPORINE [Suspect]
     Route: 065
     Dates: start: 20031223, end: 20031223
  9. CYCLOSPORINE [Suspect]
     Route: 065
     Dates: start: 20031224, end: 20031228
  10. CYCLOSPORINE [Suspect]
     Route: 065
     Dates: start: 20031229, end: 20040106
  11. CYCLOSPORINE [Suspect]
     Route: 065
     Dates: start: 20040107, end: 20040113
  12. CYCLOSPORINE [Suspect]
     Route: 065
     Dates: start: 20040114, end: 20040117
  13. CYCLOSPORINE [Suspect]
     Dosage: 200MG IN THE MORNING AND 175MG IN THE EVENING.
     Route: 065
     Dates: start: 20040118, end: 20040118
  14. CYCLOSPORINE [Suspect]
     Dosage: 175MG IN THE MORNING AND 125MG IN THE EVENING.
     Route: 065
     Dates: start: 20040119, end: 20040123
  15. CYCLOSPORINE [Suspect]
     Dosage: 150MG IN THE MORNING AND 175MG IN THE EVENING.
     Route: 065
     Dates: start: 20040124, end: 20040125
  16. CYCLOSPORINE [Suspect]
     Route: 065
     Dates: start: 20040126
  17. URBASON [Suspect]
     Route: 065
     Dates: start: 20031220, end: 20031220
  18. URBASON [Suspect]
     Route: 065
     Dates: start: 20031221, end: 20031221
  19. URBASON [Suspect]
     Route: 065
     Dates: start: 20031222, end: 20031222
  20. URBASON [Suspect]
     Route: 065
     Dates: start: 20031223, end: 20031223
  21. URBASON [Suspect]
     Route: 065
     Dates: start: 20031224, end: 20031224
  22. URBASON [Suspect]
     Route: 065
     Dates: start: 20031225, end: 20031225
  23. URBASON [Suspect]
     Route: 065
     Dates: start: 20031226, end: 20031226
  24. URBASON [Suspect]
     Route: 065
     Dates: start: 20031227, end: 20031227
  25. URBASON [Suspect]
     Route: 065
     Dates: start: 20031228, end: 20031228
  26. URBASON [Suspect]
     Route: 065
     Dates: start: 20031229, end: 20040329
  27. URBASON [Suspect]
     Route: 065
     Dates: start: 20040330, end: 20040426
  28. URBASON [Suspect]
     Route: 065
     Dates: start: 20040427
  29. DILTIAZEM RETARD [Concomitant]
     Dates: start: 20031219
  30. DOXAZOSINMESILAT [Concomitant]
     Dates: start: 20031221
  31. METOPROLOL SUCCINATE [Concomitant]
     Dates: start: 20031221, end: 20031221
  32. CLONIDIN [Concomitant]
     Dates: start: 20031219
  33. NIFEDIPINE [Concomitant]
     Dates: start: 20031220, end: 20031220
  34. CYTOMEGALIE-IMMUNGLOBULIN [Concomitant]
     Dates: start: 20031220, end: 20031220
  35. COTRIMOXAZOL [Concomitant]
     Dosage: STOPPED ON 24 DECEMBER 2004. RE-STARTED 02 JANUARY 2004.
     Dates: start: 20031220
  36. CEFTRIAXON [Concomitant]
     Dates: start: 20031220, end: 20031220
  37. GANCICLOVIR [Concomitant]
     Dates: start: 20031221
  38. CEFOTAXIM [Concomitant]
     Dates: start: 20031230, end: 20040105
  39. LEVOFLOXACIN [Concomitant]
     Dates: start: 20040104, end: 20040131
  40. IMIPENEM [Concomitant]
     Dates: start: 20040106, end: 20040131
  41. EPOGEN [Concomitant]
     Dates: start: 20040103, end: 20040302
  42. LINEZOLID [Concomitant]
     Dates: start: 20040224
  43. PRAVASTATIN [Concomitant]
     Dates: start: 20040304
  44. AMLODIPINE [Concomitant]
     Dates: start: 20040201

REACTIONS (8)
  - BLOOD CREATININE INCREASED [None]
  - HYPERKALAEMIA [None]
  - LYMPHOCELE [None]
  - PNEUMONIA [None]
  - URINARY INCONTINENCE [None]
  - URINARY TRACT INFECTION [None]
  - URINOMA [None]
  - VOMITING [None]
